FAERS Safety Report 9297342 (Version 3)
Quarter: 2013Q3

REPORT INFORMATION
  Report Type: Spontaneous
  Country: US (occurrence: US)
  Receive Date: 20130520
  Receipt Date: 20130725
  Transmission Date: 20140515
  Serious: No
  Sender: FDA-Public Use
  Company Number: US-BIOGENIDEC-2013BI044482

PATIENT
  Sex: Female

DRUGS (1)
  1. TYSABRI [Suspect]
     Indication: MULTIPLE SCLEROSIS
     Route: 042
     Dates: start: 20130430

REACTIONS (8)
  - Fall [Recovered/Resolved]
  - Peroneal nerve palsy [Recovered/Resolved]
  - Paraesthesia [Not Recovered/Not Resolved]
  - Hemiparesis [Recovered/Resolved]
  - Drug effect decreased [Unknown]
  - Asthenia [Recovered/Resolved]
  - Urinary tract infection [Recovered/Resolved]
  - Hypotension [Unknown]
